FAERS Safety Report 21655341 (Version 2)
Quarter: 2023Q1

REPORT INFORMATION
  Report Type: Other
  Country: US (occurrence: None)
  Receive Date: 20221129
  Receipt Date: 20230117
  Transmission Date: 20230418
  Serious: Yes (Other)
  Sender: FDA-Public Use
  Company Number: US-ROCHE-3201421

PATIENT
  Age: 35 Year
  Sex: Female
  Weight: 136.4 kg

DRUGS (1)
  1. OCREVUS [Suspect]
     Active Substance: OCRELIZUMAB
     Indication: Multiple sclerosis
     Dosage: DATE OF TREATMENT?: 23/SEP/2022
     Route: 042
     Dates: start: 20220909

REACTIONS (10)
  - Throat tightness [Recovered/Resolved]
  - Depression [Not Recovered/Not Resolved]
  - Fall [Unknown]
  - Urticaria [Recovered/Resolved]
  - Ankle fracture [Recovering/Resolving]
  - Pruritus [Unknown]
  - Paraesthesia [Unknown]
  - Anxiety [Unknown]
  - Suicidal ideation [Unknown]
  - Dyspnoea [Unknown]

NARRATIVE: CASE EVENT DATE: 20220909
